FAERS Safety Report 11559291 (Version 1)
Quarter: 2015Q3

REPORT INFORMATION
  Report Type: Report from Study
  Country: AR (occurrence: AR)
  Receive Date: 20150928
  Receipt Date: 20150928
  Transmission Date: 20151125
  Serious: Yes (Hospitalization)
  Sender: FDA-Public Use
  Company Number: PHHY2015AR104629

PATIENT
  Sex: Male

DRUGS (1)
  1. DIOVAN [Suspect]
     Active Substance: VALSARTAN
     Indication: BLOOD PRESSURE ABNORMAL
     Dosage: 0.5 DF (160 MG), BID (HALF IN THE MORNING AND HALF IN THE NIGHT)
     Route: 065

REACTIONS (3)
  - Wrong technique in product usage process [Unknown]
  - Pneumonia [Recovering/Resolving]
  - Poisoning [Recovering/Resolving]
